FAERS Safety Report 13052072 (Version 1)
Quarter: 2016Q4

REPORT INFORMATION
  Report Type: Spontaneous
  Country: PT (occurrence: PT)
  Receive Date: 20161221
  Receipt Date: 20161221
  Transmission Date: 20170207
  Serious: Yes (Other)
  Sender: FDA-Public Use
  Company Number: PT-SA-2016SA227008

PATIENT
  Age: 57 Year
  Sex: Female
  Weight: 62 kg

DRUGS (2)
  1. ACTIDOX 100 [Suspect]
     Active Substance: DOXYCYCLINE
     Indication: BRUCELLOSIS
     Route: 048
     Dates: start: 20160919, end: 20161004
  2. RIFADIN [Suspect]
     Active Substance: RIFAMPIN
     Indication: BRUCELLOSIS
     Route: 048
     Dates: start: 20160919, end: 20161004

REACTIONS (6)
  - Hypertension [Unknown]
  - Palpitations [Unknown]
  - Erythema [Recovered/Resolved]
  - Dermatitis allergic [Recovered/Resolved]
  - Pruritus [Recovered/Resolved]
  - Intracranial pressure increased [Unknown]

NARRATIVE: CASE EVENT DATE: 20161001
